FAERS Safety Report 15052994 (Version 1)
Quarter: 2018Q2

REPORT INFORMATION
  Report Type: Spontaneous
  Country: BE (occurrence: BE)
  Receive Date: 20180622
  Receipt Date: 20180622
  Transmission Date: 20180711
  Serious: Yes (Other)
  Sender: FDA-Public Use
  Company Number: BE-ELI_LILLY_AND_COMPANY-BE201806006067

PATIENT
  Age: 70 Year
  Sex: Male

DRUGS (1)
  1. ZYPADHERA [Suspect]
     Active Substance: OLANZAPINE PAMOATE
     Indication: PRODUCT USED FOR UNKNOWN INDICATION
     Dosage: 210 MG, OTHER
     Route: 030

REACTIONS (5)
  - Myalgia [Unknown]
  - Speech disorder [Unknown]
  - Salivary hypersecretion [Unknown]
  - Confusional state [Unknown]
  - Fatigue [Unknown]
